FAERS Safety Report 22127798 (Version 1)
Quarter: 2023Q1

REPORT INFORMATION
  Report Type: Spontaneous
  Country: HU (occurrence: HU)
  Receive Date: 20230323
  Receipt Date: 20230323
  Transmission Date: 20230417
  Serious: Yes (Death, Other)
  Sender: FDA-Public Use
  Company Number: HU-SA-SAC20220919000056

PATIENT
  Age: 62 Year
  Sex: Female

DRUGS (1)
  1. FABRAZYME [Suspect]
     Active Substance: AGALSIDASE BETA
     Indication: Fabry^s disease
     Dosage: 1 MG/BODYWEIGHT; QOW
     Route: 041
     Dates: start: 20200603, end: 20220810

REACTIONS (2)
  - Cardiopulmonary failure [Fatal]
  - Renal failure [Fatal]

NARRATIVE: CASE EVENT DATE: 20220907
